FAERS Safety Report 7715811-4 (Version None)
Quarter: 2011Q3

REPORT INFORMATION
  Report Type: 
  Country: None (occurrence: None)
  Receive Date: 20110829
  Receipt Date: 20110829
  Transmission Date: 20111222
  Serious: Yes (Hospitalization, Other)
  Sender: FDA-Public Use
  Company Number: None

PATIENT
  Sex: Female
  Weight: 100.69 kg

DRUGS (15)
  1. ALBUTEROL [Concomitant]
  2. CARDIZEM CD [Concomitant]
     Route: 048
  3. SYMBICORT 160/4.5MCG INHALER 2 PUFFS [Concomitant]
  4. AMIODARONE HCL [Concomitant]
     Route: 048
  5. SPIRIVA [Concomitant]
     Route: 048
  6. AMIODARONE HCL [Suspect]
     Indication: ATRIAL FIBRILLATION
  7. POTASSIUM CHLORIDE [Concomitant]
     Route: 048
  8. HYDROCHLOROTHIAZIDE [Concomitant]
     Route: 048
  9. DIGOXIN [Concomitant]
     Route: 048
  10. ASPIRIN [Concomitant]
     Route: 048
  11. M.V.I. [Concomitant]
     Route: 048
  12. VITAMIN D [Concomitant]
     Route: 048
  13. SIMAVASTATIN [Concomitant]
     Route: 048
  14. ULTRAM [Concomitant]
     Route: 048
  15. AMLODIPINE [Concomitant]
     Route: 048

REACTIONS (5)
  - HYPERHIDROSIS [None]
  - PALPITATIONS [None]
  - HEART RATE IRREGULAR [None]
  - HEART RATE INCREASED [None]
  - DIARRHOEA [None]
